FAERS Safety Report 6851453-0 (Version None)
Quarter: 2010Q3

REPORT INFORMATION
  Report Type: 
  Country: None (occurrence: None)
  Receive Date: 20100717
  Receipt Date: 20080216
  Transmission Date: 20110219
  Serious: Yes (Other)
  Sender: FDA-Public Use
  Company Number: US-PFIZER INC-2008006476

PATIENT
  Sex: Female
  Weight: 79.8 kg

DRUGS (5)
  1. CHANTIX [Suspect]
     Indication: EX-TOBACCO USER
     Dates: start: 20080112, end: 20080115
  2. ATENOLOL [Concomitant]
     Dates: start: 20070924
  3. CALCIUM WITH VITAMIN D [Concomitant]
     Dates: start: 20071030
  4. VALIUM [Concomitant]
  5. BONTRIL [Concomitant]
     Indication: WEIGHT DECREASED
     Dates: start: 20080108

REACTIONS (5)
  - ANXIETY [None]
  - DEPRESSION [None]
  - EMOTIONAL DISORDER [None]
  - HALLUCINATION, AUDITORY [None]
  - SUICIDAL IDEATION [None]
